FAERS Safety Report 7313885-6 (Version None)
Quarter: 2011Q1

REPORT INFORMATION
  Report Type: 
  Country: None (occurrence: None)
  Receive Date: 20110225
  Receipt Date: 20110216
  Transmission Date: 20110831
  Serious: Yes (Other)
  Sender: FDA-Public Use
  Company Number: US-AMGEN-USASP2011006943

PATIENT
  Age: 39 Year
  Sex: Female

DRUGS (1)
  1. ENBREL [Suspect]
     Indication: ANKYLOSING SPONDYLITIS
     Dates: start: 20110203

REACTIONS (8)
  - HYPOAESTHESIA [None]
  - MUSCULAR WEAKNESS [None]
  - DYSPNOEA [None]
  - DRY MOUTH [None]
  - DRUG EFFECT DECREASED [None]
  - HEADACHE [None]
  - PARAESTHESIA [None]
  - EYE SWELLING [None]
